FAERS Safety Report 9081632 (Version 1)
Quarter: 2013Q1

REPORT INFORMATION
  Report Type: Report from Study
  Country: US (occurrence: US)
  Receive Date: 20130130
  Receipt Date: 20130130
  Transmission Date: 20140127
  Serious: No
  Sender: FDA-Public Use
  Company Number: US-ABBOTT-12P-163-0953190-00

PATIENT
  Age: 58 Year
  Sex: Male
  Weight: 72.64 kg

DRUGS (10)
  1. HUMIRA 40 MG/0.8 ML PEN [Suspect]
     Indication: PSORIATIC ARTHROPATHY
     Dosage: LOADING DOSE
     Dates: start: 20120703
  2. CLONIDINE [Concomitant]
     Indication: HYPERTENSION
  3. LISINOPRIL [Concomitant]
     Indication: HYPERTENSION
  4. METOPROLOL [Concomitant]
     Indication: HYPERTENSION
  5. KETOCONAZOLE [Concomitant]
     Indication: PSORIASIS
  6. TRIAMCINOLONE ACETONIDE [Concomitant]
     Indication: PSORIASIS
  7. TRAMADOL [Concomitant]
     Indication: PAIN
  8. MELOXICAM [Concomitant]
     Indication: INFLAMMATION
  9. PHENERGAN [Concomitant]
     Indication: NAUSEA
  10. TYLENOL [Concomitant]
     Indication: PAIN

REACTIONS (3)
  - Wrong technique in drug usage process [Recovered/Resolved]
  - Drug administered at inappropriate site [Recovered/Resolved]
  - Injection site haemorrhage [Recovered/Resolved]
